FAERS Safety Report 16135249 (Version 7)
Quarter: 2022Q4

REPORT INFORMATION
  Report Type: Report from Study
  Country: JP (occurrence: JP)
  Receive Date: 20190329
  Receipt Date: 20221003
  Transmission Date: 20230113
  Serious: Yes (Other)
  Sender: FDA-Public Use
  Company Number: JP-JNJFOC-20190335454

PATIENT
  Age: 57 Year
  Sex: Male

DRUGS (24)
  1. DARUNAVIR [Suspect]
     Active Substance: DARUNAVIR
     Indication: HIV infection
     Route: 048
     Dates: start: 20150826, end: 20170216
  2. COBICISTAT\DARUNAVIR ETHANOLATE [Suspect]
     Active Substance: COBICISTAT\DARUNAVIR ETHANOLATE
     Indication: HIV infection
     Route: 048
     Dates: start: 20170217
  3. RILPIVIRINE HYDROCHLORIDE [Suspect]
     Active Substance: RILPIVIRINE HYDROCHLORIDE
     Indication: HIV infection
     Route: 048
     Dates: start: 20150826, end: 20190401
  4. TIVICAY [Suspect]
     Active Substance: DOLUTEGRAVIR SODIUM
     Indication: HIV infection
     Route: 048
     Dates: start: 20150826, end: 20190401
  5. NORVIR [Suspect]
     Active Substance: RITONAVIR
     Indication: HIV infection
     Route: 048
     Dates: start: 20150826, end: 20170216
  6. JULUCA [Concomitant]
     Active Substance: DOLUTEGRAVIR SODIUM\RILPIVIRINE HYDROCHLORIDE
     Indication: HIV infection
     Route: 048
     Dates: start: 20190401
  7. URSODIOL [Concomitant]
     Active Substance: URSODIOL
     Indication: Drug-induced liver injury
     Dosage: UNKNOWN
     Route: 048
     Dates: start: 20150821, end: 20150827
  8. PREDNISOLONE [Concomitant]
     Active Substance: PREDNISOLONE
     Dosage: UNKNOWN
     Route: 065
     Dates: start: 20150820, end: 20150827
  9. VALGANCICLOVIR [Concomitant]
     Active Substance: VALGANCICLOVIR
     Indication: Cytomegalovirus viraemia
     Dosage: UNKNOWN
     Route: 048
     Dates: start: 20150826, end: 20150916
  10. SULFAMETHOXAZOLE\TRIMETHOPRIM [Concomitant]
     Active Substance: SULFAMETHOXAZOLE\TRIMETHOPRIM
     Indication: Pneumocystis jirovecii pneumonia
     Dosage: UNKNOWN
     Route: 048
     Dates: start: 20150807, end: 20150827
  11. SULFAMETHOXAZOLE\TRIMETHOPRIM [Concomitant]
     Active Substance: SULFAMETHOXAZOLE\TRIMETHOPRIM
     Indication: Prophylaxis
     Dosage: UNKNOWN
     Route: 048
     Dates: start: 20150828, end: 20160517
  12. CANCIDAS [Concomitant]
     Active Substance: CASPOFUNGIN ACETATE
     Indication: Fungal infection
     Dosage: UNKNOWN
     Route: 065
     Dates: start: 20150904, end: 20150911
  13. CLINDAMYCIN PHOSPHATE [Concomitant]
     Active Substance: CLINDAMYCIN PHOSPHATE
     Dosage: UNKNOWN
     Route: 065
     Dates: start: 20150921
  14. INDOMETHACIN FARNESIL [Concomitant]
     Active Substance: INDOMETHACIN FARNESIL
     Indication: Arthralgia
     Dosage: UNKNOWN
     Route: 048
     Dates: start: 20150930, end: 20170429
  15. LOXOPROFEN SODIUM DIHYDRATE [Concomitant]
     Active Substance: LOXOPROFEN SODIUM DIHYDRATE
     Indication: Arthralgia
     Dosage: UNKNOWN
     Route: 062
     Dates: start: 20160613
  16. INDOMETHACIN [Concomitant]
     Active Substance: INDOMETHACIN
     Indication: Arthralgia
     Dosage: UNKNOWN
     Route: 061
     Dates: start: 20150930
  17. RILMAZAFONE HYDROCHLORIDE [Concomitant]
     Active Substance: RILMAZAFONE HYDROCHLORIDE
     Indication: Insomnia
     Dosage: UNKNOWN
     Route: 048
     Dates: start: 20151028, end: 20151217
  18. LOXOPROFEN SODIUM [Concomitant]
     Active Substance: LOXOPROFEN SODIUM
     Indication: Arthralgia
     Dosage: UNKNOWN
     Route: 048
     Dates: start: 20151028
  19. FEXOFENADINE HYDROCHLORIDE [Concomitant]
     Active Substance: FEXOFENADINE HYDROCHLORIDE
     Dosage: UNKNOWN
     Route: 048
     Dates: start: 20151021, end: 20170429
  20. PEKIRON [Concomitant]
     Indication: Tinea pedis
     Dosage: UNKNOWN
     Route: 061
     Dates: start: 20160309
  21. EFINACONAZOLE [Concomitant]
     Active Substance: EFINACONAZOLE
     Indication: Tinea pedis
     Dosage: UNKNOWN
     Route: 061
     Dates: start: 20160309
  22. MICARDIS [Concomitant]
     Active Substance: TELMISARTAN
     Indication: Hypertension
     Dosage: UNKNOWN
     Route: 048
     Dates: start: 20161116, end: 20170822
  23. AMLODIPINE BESYLATE\TELMISARTAN [Concomitant]
     Active Substance: AMLODIPINE BESYLATE\TELMISARTAN
     Indication: Hypertension
     Dosage: UNKNOWN
     Route: 048
     Dates: start: 20170823
  24. CYANOCOBALAMIN [Concomitant]
     Active Substance: CYANOCOBALAMIN
     Indication: Asthenopia
     Dosage: DOSE UNKNOWN
     Route: 047
     Dates: start: 20180613

REACTIONS (8)
  - Hyperuricaemia [Recovering/Resolving]
  - Fungal infection [Recovering/Resolving]
  - Folliculitis [Recovering/Resolving]
  - Arthralgia [Recovering/Resolving]
  - Hypertension [Not Recovered/Not Resolved]
  - Dyslipidaemia [Recovering/Resolving]
  - Tinea pedis [Recovering/Resolving]
  - Pain in extremity [Not Recovered/Not Resolved]

NARRATIVE: CASE EVENT DATE: 20150904
